FAERS Safety Report 4933595-X (Version None)
Quarter: 2006Q1

REPORT INFORMATION
  Report Type: 
  Country: None (occurrence: None)
  Receive Date: 20060301
  Receipt Date: 20060216
  Transmission Date: 20060701
  Serious: Yes (Hospitalization, Other)
  Sender: FDA-Public Use
  Company Number: 2006025472

PATIENT
  Age: 83 Year
  Sex: Female
  Weight: 78.9259 kg

DRUGS (11)
  1. GLUCOTROL [Suspect]
     Indication: DIABETES MELLITUS
     Dosage: ORAL
     Route: 048
  2. WARFARIN SODIUM [Concomitant]
  3. NEXIUM [Concomitant]
  4. MUCINEX (GUAIFENESIN) [Concomitant]
  5. ZOLOFT [Concomitant]
  6. CALCIUM (CALCIUM) [Concomitant]
  7. ACTONEL [Concomitant]
  8. MULTIVITAMIN [Concomitant]
  9. VITAMIN D [Concomitant]
  10. VITAMIN C (VITAMIN C) [Concomitant]
  11. ZINC (ZINC) [Concomitant]

REACTIONS (5)
  - AORTIC VALVE STENOSIS [None]
  - ATRIAL FIBRILLATION [None]
  - ILEOSTOMY [None]
  - THROMBOSIS [None]
  - WEIGHT DECREASED [None]
